FAERS Safety Report 16812021 (Version 1)
Quarter: 2019Q3

REPORT INFORMATION
  Report Type: Spontaneous
  Country: US (occurrence: US)
  Receive Date: 20190916
  Receipt Date: 20190916
  Transmission Date: 20191005
  Serious: Yes (Death, Life-Threatening, Hospitalization, Other)
  Sender: FDA-Public Use
  Company Number: US-JNJFOC-20190908286

PATIENT
  Age: 32 Year
  Sex: Female

DRUGS (1)
  1. PARACETAMOL [Suspect]
     Active Substance: ACETAMINOPHEN
     Indication: PRODUCT USED FOR UNKNOWN INDICATION
     Dosage: INGESTION; IN TOTAL; DRUG LAST PERIOD: 48 HOURS?ADDITIONAL INFO: OVERDOSE
     Route: 048

REACTIONS (9)
  - Intentional overdose [Fatal]
  - Drug-induced liver injury [Fatal]
  - Hepatic encephalopathy [Fatal]
  - Acute hepatic failure [Fatal]
  - Acidosis [Fatal]
  - Cardiac arrest [Fatal]
  - Arrhythmia [Fatal]
  - Coagulopathy [Fatal]
  - Hypotension [Fatal]
